FAERS Safety Report 7759512-5 (Version None)
Quarter: 2011Q3

REPORT INFORMATION
  Report Type: 
  Country: None (occurrence: None)
  Receive Date: 20110919
  Receipt Date: 20110919
  Transmission Date: 20111222
  Serious: Yes (Life-Threatening)
  Sender: FDA-Public Use
  Company Number: None

PATIENT
  Age: 50 Year
  Sex: Female
  Weight: 73.481 kg

DRUGS (7)
  1. GADOLINIUM MRI CONTRAST DYE [Suspect]
     Indication: DECREASED APPETITE
     Dosage: ?
     Route: 040
     Dates: start: 20100615, end: 20100616
  2. GADOLINIUM MRI CONTRAST DYE [Suspect]
     Indication: CRYING
     Dosage: ?
     Route: 040
     Dates: start: 20100615, end: 20100616
  3. GADOLINIUM MRI CONTRAST DYE [Suspect]
     Indication: GAIT DISTURBANCE
     Dosage: ?
     Route: 040
     Dates: start: 20100615, end: 20100616
  4. GADOLINIUM MRI CONTRAST DYE [Suspect]
     Indication: TREMOR
     Dosage: ?
     Route: 040
     Dates: start: 20100615, end: 20100616
  5. GADOLINIUM MRI CONTRAST DYE [Suspect]
     Indication: MUSCULAR WEAKNESS
     Dosage: ?
     Route: 040
     Dates: start: 20100615, end: 20100616
  6. GADOLINIUM MRI CONTRAST DYE [Suspect]
     Indication: PAIN
     Dosage: ?
     Route: 040
     Dates: start: 20100615, end: 20100616
  7. MAGNI HANCE MRI DYE 2008 LEVI.M [Concomitant]
     Indication: FLANK PAIN
     Dosage: ?
     Route: 040
     Dates: start: 20101215, end: 20101216

REACTIONS (11)
  - CRYING [None]
  - GAIT DISTURBANCE [None]
  - TREMOR [None]
  - BACK PAIN [None]
  - PAIN [None]
  - ACNE [None]
  - MENINGIOMA [None]
  - CONDITION AGGRAVATED [None]
  - SKIN ULCER [None]
  - MUSCULAR WEAKNESS [None]
  - MUSCULOSKELETAL CHEST PAIN [None]
